FAERS Safety Report 7419285-2 (Version None)
Quarter: 2011Q2

REPORT INFORMATION
  Report Type: 
  Country: None (occurrence: None)
  Receive Date: 20110415
  Receipt Date: 20110222
  Transmission Date: 20111010
  Serious: No
  Sender: FDA-Public Use
  Company Number: US-B.I. PHARMACEUTICALS,INC./RIDGEFIELD-2011-BP-06509BP

PATIENT
  Age: 63 Year
  Sex: Female

DRUGS (5)
  1. HYDROCHLOROTHIAZIDE [Concomitant]
     Indication: HYPERTENSION
     Dates: start: 20100101
  2. METOPROLOL TARTRATE [Concomitant]
     Indication: HYPERTENSION
     Dates: start: 20020101
  3. BENAZEPRIL HYDROCHLORIDE [Concomitant]
     Indication: HYPERTENSION
     Dates: start: 20100101
  4. LIPITOR [Concomitant]
     Indication: PROPHYLAXIS
  5. PRADAXA [Suspect]
     Indication: THROMBOSIS
     Dosage: 300 MG
     Route: 048
     Dates: start: 20110216

REACTIONS (1)
  - DIZZINESS [None]
